FAERS Safety Report 23273985 (Version 1)
Quarter: 2023Q4

REPORT INFORMATION
  Report Type: Spontaneous
  Country: US (occurrence: US)
  Receive Date: 20231207
  Receipt Date: 20231207
  Transmission Date: 20240110
  Serious: No
  Sender: FDA-Public Use
  Company Number: US-PHARMAESSENTIA CORPORATION-US-2023-PEC-002255

PATIENT
  Sex: Female

DRUGS (2)
  1. BESREMI [Suspect]
     Active Substance: ROPEGINTERFERON ALFA-2B-NJFT
     Indication: Polycythaemia vera
     Dosage: 50 MCG, Q2W
     Route: 058
  2. BESREMI [Suspect]
     Active Substance: ROPEGINTERFERON ALFA-2B-NJFT
     Dosage: 150 MICROGRAM, Q2W
     Route: 058
     Dates: start: 20230929, end: 20231008

REACTIONS (8)
  - Haematocrit abnormal [Unknown]
  - Adverse drug reaction [Unknown]
  - Mental disorder [Unknown]
  - Anxiety [Unknown]
  - Flushing [Unknown]
  - Pyrexia [Unknown]
  - Depression [Unknown]
  - Hyperhidrosis [Unknown]
